FAERS Safety Report 24122952 (Version 1)
Quarter: 2024Q3

REPORT INFORMATION
  Report Type: Spontaneous
  Country: US (occurrence: US)
  Receive Date: 20240723
  Receipt Date: 20240723
  Transmission Date: 20241016
  Serious: Yes (Death)
  Sender: AUROBINDO
  Company Number: US-AUROBINDO-AUR-APL-2024-034684

PATIENT
  Age: 42 Year
  Sex: Female

DRUGS (15)
  1. VASOPRESSIN [Suspect]
     Active Substance: VASOPRESSIN
     Indication: Septic shock
     Dosage: UNK
     Route: 065
  2. CLINDAMYCIN [Suspect]
     Active Substance: CLINDAMYCIN
     Indication: Hidradenitis
     Dosage: UNK
     Route: 048
  3. CLINDAMYCIN [Suspect]
     Active Substance: CLINDAMYCIN
     Indication: Mucopolysaccharidosis I
  4. TRIAMCINOLONE [Suspect]
     Active Substance: TRIAMCINOLONE
     Indication: Hidradenitis
     Dosage: UNK
     Route: 026
  5. TRIAMCINOLONE [Suspect]
     Active Substance: TRIAMCINOLONE
     Indication: Mucopolysaccharidosis I
  6. DOBUTAMINE [Suspect]
     Active Substance: DOBUTAMINE HYDROCHLORIDE
     Indication: Septic shock
     Dosage: UNK
     Route: 065
  7. INFLIXIMAB [Suspect]
     Active Substance: INFLIXIMAB
     Indication: Hidradenitis
     Dosage: UNK
     Route: 065
  8. INFLIXIMAB [Suspect]
     Active Substance: INFLIXIMAB
     Indication: Mucopolysaccharidosis I
  9. NOREPINEPHRINE [Suspect]
     Active Substance: NOREPINEPHRINE\NOREPINEPHRINE BITARTRATE
     Indication: Septic shock
     Dosage: UNK
     Route: 065
  10. HEPARIN [Concomitant]
     Active Substance: HEPARIN SODIUM
     Indication: Embolism venous
     Dosage: UNK
     Route: 065
  11. METRONIDAZOLE [Concomitant]
     Active Substance: METRONIDAZOLE
     Indication: Antibiotic therapy
     Dosage: UNK
     Route: 065
  12. VANCOMYCIN [Concomitant]
     Active Substance: VANCOMYCIN
     Indication: Antibiotic therapy
     Dosage: UNK
     Route: 065
  13. CEFEPIME [Concomitant]
     Active Substance: CEFEPIME HYDROCHLORIDE
     Indication: Antibiotic therapy
     Dosage: UNK
     Route: 065
  14. LINEZOLID [Concomitant]
     Active Substance: LINEZOLID
     Indication: Antibiotic prophylaxis
     Dosage: UNK
     Route: 065
  15. MEROPENEM [Concomitant]
     Active Substance: MEROPENEM
     Indication: Antibiotic prophylaxis
     Dosage: UNK
     Route: 065

REACTIONS (2)
  - Drug ineffective [Fatal]
  - Treatment noncompliance [Unknown]
